FAERS Safety Report 16267370 (Version 1)
Quarter: 2019Q2

REPORT INFORMATION
  Report Type: Spontaneous
  Country: US (occurrence: US)
  Receive Date: 20190502
  Receipt Date: 20190502
  Transmission Date: 20190711
  Serious: No
  Sender: FDA-Public Use
  Company Number: US-ASTRAZENECA-2019SE54450

PATIENT
  Age: 61 Year
  Sex: Female

DRUGS (2)
  1. RESPIRATORY SYNCYTICAL VIRUS IMMUNOGLOBULINS [Concomitant]
     Dosage: UNKNOWN
     Route: 065
  2. SYMBICORT [Suspect]
     Active Substance: BUDESONIDE\FORMOTEROL FUMARATE DIHYDRATE
     Dosage: 160/4.5 MCG , ONE PUFF TWICE DAILY
     Route: 055
     Dates: start: 2019

REACTIONS (2)
  - Product use issue [Unknown]
  - Rash papular [Unknown]
